FAERS Safety Report 7776324-7 (Version None)
Quarter: 2011Q3

REPORT INFORMATION
  Report Type: 
  Country: None (occurrence: None)
  Receive Date: 20110926
  Receipt Date: 20110915
  Transmission Date: 20111222
  Serious: Yes (Hospitalization)
  Sender: FDA-Public Use
  Company Number: US-JNJFOC-20100904560

PATIENT
  Sex: Female
  Weight: 29.1 kg

DRUGS (5)
  1. CIMZIA [Concomitant]
  2. NUTROPIN [Concomitant]
  3. INFLIXIMAB, RECOMBINANT [Suspect]
     Route: 042
     Dates: start: 20031001
  4. MERCAPTOPURINE [Concomitant]
  5. INFLIXIMAB, RECOMBINANT [Suspect]
     Indication: CROHN'S DISEASE
     Route: 042
     Dates: start: 20090209

REACTIONS (1)
  - URINARY TRACT INFECTION [None]
